FAERS Safety Report 7539204-8 (Version None)
Quarter: 2011Q2

REPORT INFORMATION
  Report Type: 
  Country: None (occurrence: None)
  Receive Date: 20110610
  Receipt Date: 20110603
  Transmission Date: 20111010
  Serious: Yes (Hospitalization)
  Sender: FDA-Public Use
  Company Number: CO-JNJFOC-20110603114

PATIENT
  Age: 21 Year
  Sex: Female

DRUGS (1)
  1. TOPIRAMATE [Suspect]
     Indication: BIPOLAR DISORDER
     Route: 048
     Dates: start: 20100902

REACTIONS (2)
  - GASTRIC INFECTION [None]
  - BIPOLAR DISORDER [None]
